FAERS Safety Report 4585537-7 (Version None)
Quarter: 2005Q1

REPORT INFORMATION
  Report Type: 
  Country: None (occurrence: None)
  Receive Date: 20050214
  Receipt Date: 20050131
  Transmission Date: 20050727
  Serious: Yes (Hospitalization)
  Sender: FDA-Public Use
  Company Number: 212128

PATIENT
  Age: 72 Year
  Sex: Female

DRUGS (9)
  1. AVASTIN [Suspect]
     Indication: RENAL CELL CARCINOMA STAGE UNSPECIFIED
     Dosage: 5 MG/KG INTRAVENOUS
     Route: 042
     Dates: start: 20050124
  2. ERLOTINIB (ERLOTINIB) TABLET 150 MG [Suspect]
     Indication: RENAL CELL CARCINOMA STAGE UNSPECIFIED
     Dosage: 150 MG QD ORAL
     Route: 048
     Dates: start: 20040124, end: 20050127
  3. FERROUS SO4 (FERROUS SULFATE) [Concomitant]
  4. LOPERAMIDE HCL [Concomitant]
  5. MEGACE [Concomitant]
  6. PROCHLORPERAZINE [Concomitant]
  7. PSYLLIUM (PSYLLIUM HUSK) [Concomitant]
  8. QUETIAPINE FUMARATE [Concomitant]
  9. NAVANE (THITHIXENE) [Concomitant]

REACTIONS (10)
  - ABDOMINAL PAIN UPPER [None]
  - FATIGUE [None]
  - GRANULOCYTE COUNT INCREASED [None]
  - HYPERTHERMIA MALIGNANT [None]
  - INFECTION [None]
  - INTERSTITIAL LUNG DISEASE [None]
  - LETHARGY [None]
  - METASTASES TO ABDOMINAL CAVITY [None]
  - PLATELET COUNT INCREASED [None]
  - WHITE BLOOD CELL COUNT INCREASED [None]
